FAERS Safety Report 6716393-6 (Version None)
Quarter: 2010Q2

REPORT INFORMATION
  Report Type: 
  Country: None (occurrence: None)
  Receive Date: 20100507
  Receipt Date: 20100505
  Transmission Date: 20101027
  Serious: Yes (Hospitalization, Other)
  Sender: FDA-Public Use
  Company Number: US-ROXANE LABORATORIES, INC.-2010-RO-00526RO

PATIENT
  Age: 45 Year
  Sex: Male

DRUGS (8)
  1. COCAINE [Suspect]
     Indication: DRUG ABUSE
  2. HYDROMORPHONE HCL [Suspect]
     Indication: PAIN
     Route: 042
  3. LIDOCAINE [Suspect]
     Indication: NERVE BLOCK
  4. MORPHINE [Suspect]
     Route: 042
  5. CRACK COCAINE [Suspect]
     Indication: DRUG ABUSE
  6. TERBUTALINE SULFATE [Suspect]
     Route: 058
  7. EPINEPHRINE [Suspect]
     Indication: PRIAPISM
  8. ENTEX SOLUTION [Suspect]

REACTIONS (3)
  - DRUG ABUSE [None]
  - DRUG INEFFECTIVE [None]
  - PRIAPISM [None]
